FAERS Safety Report 17008013 (Version 1)
Quarter: 2019Q4

REPORT INFORMATION
  Report Type: Spontaneous
  Country: IT (occurrence: US)
  Receive Date: 20191108
  Receipt Date: 20191108
  Transmission Date: 20200122
  Serious: Yes (Other)
  Sender: FDA-Public Use
  Company Number: US-HIKMA PHARMACEUTICALS USA INC.-US-H14001-18-02762

PATIENT
  Age: 76 Year
  Sex: Male

DRUGS (4)
  1. FOLINIC ACID [Suspect]
     Active Substance: LEUCOVORIN
     Indication: BLADDER CANCER
     Dosage: ()CYCLICAL
     Route: 065
  2. CISPLATIN. [Suspect]
     Active Substance: CISPLATIN
     Indication: BLADDER CANCER
     Dosage: ()CYCLICAL
     Route: 065
  3. GEMZAR [Suspect]
     Active Substance: GEMCITABINE HYDROCHLORIDE
     Indication: BLADDER CANCER
     Dosage: ()CYCLICAL
     Route: 065
  4. FLUOROURACIL. [Suspect]
     Active Substance: FLUOROURACIL
     Indication: BLADDER CANCER
     Dosage: ()CYCLICAL
     Route: 065

REACTIONS (16)
  - Depression [Unknown]
  - Fatigue [Unknown]
  - Nausea [Unknown]
  - Pneumonia [Unknown]
  - Stomatitis [Unknown]
  - Thrombocytopenia [Unknown]
  - Acute kidney injury [Unknown]
  - Syncope [Unknown]
  - Tremor [Unknown]
  - Off label use [Unknown]
  - Decreased appetite [Unknown]
  - Anaemia [Unknown]
  - Urinary tract infection [Unknown]
  - Dizziness [Unknown]
  - Toxicity to various agents [Unknown]
  - Anxiety [Unknown]
